FAERS Safety Report 8249356-2 (Version None)
Quarter: 2012Q1

REPORT INFORMATION
  Report Type: 
  Country: None (occurrence: None)
  Receive Date: 20120327
  Receipt Date: 20120321
  Transmission Date: 20120608
  Serious: Yes (Death)
  Sender: FDA-Public Use
  Company Number: 2011SP049342

PATIENT
  Age: 60 Year
  Sex: Male
  Weight: 96.1 kg

DRUGS (3)
  1. RADIOTHERAPY [Concomitant]
  2. TEMODAL [Suspect]
     Indication: GLIOMA
     Dosage: 445 MG;QD;PO ; 160 MG;QD;PO ; 340 MG;QD;PO
     Route: 048
     Dates: start: 20110314
  3. TEMODAL [Suspect]
     Indication: GLIOMA
     Dosage: 445 MG;QD;PO ; 160 MG;QD;PO ; 340 MG;QD;PO
     Route: 048

REACTIONS (1)
  - DEATH [None]
